FAERS Safety Report 6203794-8 (Version None)
Quarter: 2009Q2

REPORT INFORMATION
  Report Type: 
  Country: None (occurrence: None)
  Receive Date: 20090526
  Receipt Date: 20090526
  Transmission Date: 20091009
  Serious: Yes (Hospitalization, Disabling, Other)
  Sender: FDA-Public Use
  Company Number: None

PATIENT
  Age: 38 Year
  Sex: Female
  Weight: 81.6475 kg

DRUGS (2)
  1. LEVAQUIN [Suspect]
     Indication: PNEUMONIA
     Dosage: 1 TAB DAILY PO
     Route: 048
     Dates: start: 20090505, end: 20090510
  2. PREDNISONE [Suspect]
     Indication: PNEUMONIA
     Dosage: 3 DAILY WITH A TAPER PO
     Route: 048
     Dates: start: 20090512, end: 20090525

REACTIONS (11)
  - ACTIVITIES OF DAILY LIVING IMPAIRED [None]
  - ARTHROPATHY [None]
  - CRYING [None]
  - DYSPNOEA [None]
  - FEELING ABNORMAL [None]
  - INSOMNIA [None]
  - LOCAL SWELLING [None]
  - PAIN OF SKIN [None]
  - RENAL DISORDER [None]
  - SWELLING FACE [None]
  - TREMOR [None]
